FAERS Safety Report 7738571-X (Version None)
Quarter: 2011Q3

REPORT INFORMATION
  Report Type: 
  Country: None (occurrence: None)
  Receive Date: 20110908
  Receipt Date: 20110831
  Transmission Date: 20111222
  Serious: No
  Sender: FDA-Public Use
  Company Number: JP-B.I. PHARMACEUTICALS,INC./RIDGEFIELD-2011-BP-16858NB

PATIENT
  Sex: Female

DRUGS (6)
  1. LIPITOR [Concomitant]
     Dosage: 10 MG
     Route: 065
  2. PRADAXA [Suspect]
     Indication: ATRIAL FIBRILLATION
     Dosage: 220 MG
     Route: 048
     Dates: start: 20110412, end: 20110621
  3. BISOPROLOL FUMARATE [Concomitant]
     Dosage: 5 MG
     Route: 065
  4. RABEPRAZOLE SODIUM [Concomitant]
     Dosage: 10 MG
     Route: 065
  5. AMLODIPINE [Concomitant]
     Dosage: 5 MG
     Route: 065
  6. ENALAPRIL MALEATE [Concomitant]
     Dosage: 5 MG
     Route: 065

REACTIONS (2)
  - INTERNATIONAL NORMALISED RATIO INCREASED [None]
  - ACTIVATED PARTIAL THROMBOPLASTIN TIME PROLONGED [None]
